FAERS Safety Report 10355247 (Version 1)
Quarter: 2014Q3

REPORT INFORMATION
  Report Type: Spontaneous
  Country: US (occurrence: None)
  Receive Date: 20140730
  Receipt Date: 20140730
  Transmission Date: 20150326
  Serious: Yes (Hospitalization, Disabling)
  Sender: FDA-Public Use
  Company Number: None

PATIENT
  Age: 29 Year
  Sex: Male
  Weight: 100.7 kg

DRUGS (1)
  1. PANHEMATIN [Suspect]
     Active Substance: HEMIN
     Indication: PORPHYRIA
     Dosage: 330CC ?ONCE DAILY?INTO A VEIN?330CC
     Route: 042
     Dates: start: 20140717, end: 20140719

REACTIONS (4)
  - General physical health deterioration [None]
  - Mental impairment [None]
  - Adverse drug reaction [None]
  - Multiple injuries [None]

NARRATIVE: CASE EVENT DATE: 20140719
